FAERS Safety Report 25687061 (Version 1)
Quarter: 2025Q3

REPORT INFORMATION
  Report Type: Spontaneous
  Country: JP (occurrence: JP)
  Receive Date: 20250816
  Receipt Date: 20250816
  Transmission Date: 20251021
  Serious: Yes (Death, Other)
  Sender: UNITED THERAPEUTICS
  Company Number: JP-UNITED THERAPEUTICS-UNT-2025-015166

PATIENT
  Age: 82 Year
  Sex: Female

DRUGS (1)
  1. TREPROSTINIL [Suspect]
     Active Substance: TREPROSTINIL
     Indication: Pulmonary hypertension
     Dosage: 24 ?G, QID
     Dates: start: 20250402, end: 20250724

REACTIONS (4)
  - Death [Fatal]
  - Oedema [Unknown]
  - Dyspnoea [Unknown]
  - Choking sensation [Unknown]

NARRATIVE: CASE EVENT DATE: 20250401
